FAERS Safety Report 6687883-X (Version None)
Quarter: 2010Q2

REPORT INFORMATION
  Report Type: 
  Country: None (occurrence: None)
  Receive Date: 20100420
  Receipt Date: 20100329
  Transmission Date: 20101027
  Serious: Yes (Hospitalization)
  Sender: FDA-Public Use
  Company Number: IT-BAYER-200825906GPV

PATIENT

DRUGS (11)
  1. CAMPATH [Suspect]
     Indication: PERIPHERAL T-CELL LYMPHOMA UNSPECIFIED
     Dosage: FIRST C-CHOP
     Route: 058
     Dates: start: 20070810
  2. CAMPATH [Suspect]
     Dosage: SECOND C-CHOP
     Route: 058
     Dates: start: 20070831
  3. PREDNISONE [Suspect]
     Indication: PERIPHERAL T-CELL LYMPHOMA UNSPECIFIED
     Dosage: 2'ND CYCLE
     Route: 048
     Dates: start: 20080831
  4. PREDNISONE [Suspect]
     Dosage: 1'ST CYCLE
     Route: 048
     Dates: start: 20080810
  5. DOXORUBICIN HCL [Suspect]
     Indication: PERIPHERAL T-CELL LYMPHOMA UNSPECIFIED
     Dosage: FIRST CYCLE
     Route: 042
     Dates: start: 20080810
  6. DOXORUBICIN HCL [Suspect]
     Dosage: SECOND CYCLE
     Route: 042
     Dates: start: 20080831
  7. VINCRISTINE [Suspect]
     Indication: PERIPHERAL T-CELL LYMPHOMA UNSPECIFIED
     Dosage: FIRST CYCLE
     Route: 042
     Dates: start: 20080810
  8. VINCRISTINE [Suspect]
     Dosage: SECOND CYCLE
     Route: 042
     Dates: start: 20080831
  9. CYCLOPHOSPHAMIDE [Suspect]
     Indication: PERIPHERAL T-CELL LYMPHOMA UNSPECIFIED
     Dosage: 2'ND CYCLE
     Route: 042
     Dates: start: 20080831
  10. CYCLOPHOSPHAMIDE [Suspect]
     Dosage: 1'ST CYCLE
     Route: 042
     Dates: start: 20080810
  11. CYCLOSPORINE [Suspect]
     Indication: PROPHYLAXIS AGAINST GRAFT VERSUS HOST DISEASE

REACTIONS (6)
  - LUNG INFECTION [None]
  - LUNG INFILTRATION [None]
  - OXYGEN SATURATION DECREASED [None]
  - PLEURAL EFFUSION [None]
  - PYREXIA [None]
  - RESPIRATORY FAILURE [None]
